FAERS Safety Report 6574313-1 (Version None)
Quarter: 2010Q1

REPORT INFORMATION
  Report Type: 
  Country: None (occurrence: None)
  Receive Date: 20100201
  Receipt Date: 20100115
  Transmission Date: 20100710
  Serious: Yes (Hospitalization, Other)
  Sender: FDA-Public Use
  Company Number: 2010000226

PATIENT
  Age: 63 Year
  Sex: Female

DRUGS (4)
  1. TARCEVA [Suspect]
     Indication: PANCREATIC CARCINOMA
     Dosage: ORAL
     Route: 048
     Dates: start: 20090401, end: 20091101
  2. XELODA [Suspect]
     Indication: PANCREATIC CARCINOMA
     Dosage: (2000 MG/M2)
     Dates: start: 20091225
  3. GEMZAR [Suspect]
     Indication: PANCREATIC CARCINOMA
     Dates: start: 20090401, end: 20090401
  4. OXALIPLATIN [Concomitant]

REACTIONS (8)
  - ALOPECIA [None]
  - DUODENAL STENOSIS [None]
  - LARYNGOSPASM [None]
  - MALIGNANT NEOPLASM PROGRESSION [None]
  - OESOPHAGEAL ULCER [None]
  - RASH [None]
  - THROMBOSIS [None]
  - UPPER GASTROINTESTINAL HAEMORRHAGE [None]
